FAERS Safety Report 11539252 (Version 1)
Quarter: 2015Q3

REPORT INFORMATION
  Report Type: Spontaneous
  Country: US (occurrence: US)
  Receive Date: 20150923
  Receipt Date: 20150923
  Transmission Date: 20151125
  Serious: Yes (Other)
  Sender: FDA-Public Use
  Company Number: US-PFIZER INC-2015308756

PATIENT
  Age: 28 Year
  Sex: Male
  Weight: 95 kg

DRUGS (7)
  1. ATIVAN [Concomitant]
     Active Substance: LORAZEPAM
  2. KEPPRA [Concomitant]
     Active Substance: LEVETIRACETAM
  3. LYRICA [Suspect]
     Active Substance: PREGABALIN
     Indication: EPILEPSY
     Dosage: 100 MG, 2X/DAY
     Route: 048
     Dates: start: 2015, end: 20150909
  4. LYRICA [Suspect]
     Active Substance: PREGABALIN
     Indication: PAIN
  5. PHENOBARBITAL. [Concomitant]
     Active Substance: PHENOBARBITAL
  6. KLONOPIN [Concomitant]
     Active Substance: CLONAZEPAM
  7. XANAX [Concomitant]
     Active Substance: ALPRAZOLAM

REACTIONS (3)
  - Therapeutic response unexpected [Unknown]
  - Pre-existing condition improved [Unknown]
  - Seizure [Recovered/Resolved]

NARRATIVE: CASE EVENT DATE: 2015
